FAERS Safety Report 19204605 (Version 1)
Quarter: 2021Q2

REPORT INFORMATION
  Report Type: Report from Study
  Country: GB (occurrence: GB)
  Receive Date: 20210503
  Receipt Date: 20210503
  Transmission Date: 20210717
  Serious: Yes (Hospitalization, Other)
  Sender: FDA-Public Use
  Company Number: NVSC2021GB097441

PATIENT
  Age: 71 Year
  Sex: Female

DRUGS (1)
  1. LUTATHERA [Suspect]
     Active Substance: LUTETIUM OXODOTREOTIDE LU-177
     Indication: NEUROENDOCRINE TUMOUR
     Dosage: UNK (EVERY 8 TO 10 WEEKS)
     Route: 042
     Dates: start: 202101

REACTIONS (2)
  - Ill-defined disorder [Unknown]
  - Cardiotoxicity [Unknown]

NARRATIVE: CASE EVENT DATE: 202104
